FAERS Safety Report 9557335 (Version 1)
Quarter: 2013Q3

REPORT INFORMATION
  Report Type: Spontaneous
  Country: US (occurrence: None)
  Receive Date: 20130726
  Receipt Date: 20130726
  Transmission Date: 20140515
  Serious: Yes (Hospitalization)
  Sender: FDA-Public Use
  Company Number: UTC-022777

PATIENT
  Age: 67 Year
  Sex: Female
  Weight: 154.5 kg

DRUGS (2)
  1. REMODULIN [Suspect]
     Indication: PULMONARY ARTERIAL HYPERTENSION
     Dosage: 14.4 UG/KG (0.01 UG/KG, 1 IN 1 MIN), SUBCUTANEOUS
     Route: 058
     Dates: start: 20110608
  2. PLAVIX (CLOPIDOGREL) (UNKNOWN) [Concomitant]

REACTIONS (3)
  - Fluid overload [None]
  - Hypoxia [None]
  - Pulmonary hypertension [None]
